FAERS Safety Report 4570434-3 (Version None)
Quarter: 2005Q1

REPORT INFORMATION
  Report Type: 
  Country: None (occurrence: None)
  Receive Date: 20050204
  Receipt Date: 20050121
  Transmission Date: 20050727
  Serious: Yes (Disabling)
  Sender: FDA-Public Use
  Company Number: DE-ABBOTT-05P-062-0288345-00

PATIENT
  Sex: Female

DRUGS (2)
  1. KALETRA [Suspect]
     Indication: PROPHYLAXIS AGAINST HIV INFECTION
     Dosage: NOT REPORTED, NOT REPORTED
     Route: 048
     Dates: start: 20030922, end: 20031001
  2. LAMIVUDINE AND ZIDOVUDINE [Concomitant]
     Indication: PROPHYLAXIS AGAINST HIV INFECTION
     Dosage: NOT REPORTED, NOT REPORTED
     Route: 048
     Dates: start: 20030922, end: 20031001

REACTIONS (5)
  - DIARRHOEA [None]
  - DYSHIDROSIS [None]
  - FOLLICULITIS [None]
  - HEADACHE [None]
  - MYALGIA [None]
